FAERS Safety Report 7759683-0 (Version None)
Quarter: 2011Q3

REPORT INFORMATION
  Report Type: 
  Country: None (occurrence: None)
  Receive Date: 20110919
  Receipt Date: 20110914
  Transmission Date: 20111222
  Serious: Yes (Hospitalization)
  Sender: FDA-Public Use
  Company Number: CH-JNJFOC-20110808297

PATIENT
  Sex: Male
  Weight: 75 kg

DRUGS (10)
  1. MARCUMAR [Concomitant]
     Indication: PULMONARY EMBOLISM
     Route: 048
     Dates: start: 20110416
  2. NEXIUM [Concomitant]
     Route: 048
     Dates: start: 20110107
  3. PREDNISONE [Suspect]
     Indication: PROSTATE CANCER METASTATIC
     Route: 048
     Dates: start: 20110415
  4. BUPRENORPHINE [Concomitant]
     Route: 062
     Dates: start: 20110415
  5. GOSERELIN [Concomitant]
     Indication: PROSTATE CANCER
     Route: 058
     Dates: start: 20110906, end: 20110906
  6. ABIRATERONE ACETATE [Suspect]
     Indication: PROSTATE CANCER METASTATIC
     Route: 048
     Dates: start: 20110415, end: 20110816
  7. BUPRENORPHINE [Concomitant]
     Indication: TUMOUR PAIN
     Route: 062
     Dates: start: 20110818
  8. ABIRATERONE ACETATE [Suspect]
     Route: 048
  9. GLUCOCORTICOID [Concomitant]
     Route: 048
     Dates: start: 20110101
  10. INSPRA [Concomitant]
     Route: 048
     Dates: start: 20110421

REACTIONS (6)
  - DECREASED APPETITE [None]
  - GROIN PAIN [None]
  - CHEST PAIN [None]
  - FATIGUE [None]
  - ARTHRALGIA [None]
  - BACK PAIN [None]
